FAERS Safety Report 9853200 (Version 1)
Quarter: 2014Q1

REPORT INFORMATION
  Report Type: Spontaneous
  Country: US (occurrence: US)
  Receive Date: 20140129
  Receipt Date: 20140129
  Transmission Date: 20141002
  Serious: Yes (Death, Other)
  Sender: FDA-Public Use
  Company Number: US-GILEAD-2014-0093270

PATIENT
  Age: 83 Year
  Sex: Male

DRUGS (8)
  1. LETAIRIS [Suspect]
     Indication: PULMONARY ARTERIAL HYPERTENSION
     Route: 048
     Dates: start: 20130713
  2. AUGMENTIN [Concomitant]
  3. ALLOPURINOL [Concomitant]
  4. DIGOXIN [Concomitant]
  5. VIAGRA [Concomitant]
  6. LEVOTHYROXINE [Concomitant]
  7. FUROSEMIDE [Concomitant]
  8. PRILOSEC                           /00661201/ [Concomitant]

REACTIONS (1)
  - Death [Fatal]
